FAERS Safety Report 24977893 (Version 1)
Quarter: 2025Q1

REPORT INFORMATION
  Report Type: Spontaneous
  Country: US (occurrence: US)
  Receive Date: 20250217
  Receipt Date: 20250217
  Transmission Date: 20250408
  Serious: Yes (Other)
  Sender: PFIZER
  Company Number: US-PFIZER INC-PV202500017871

PATIENT
  Age: 49 Year
  Sex: Female

DRUGS (1)
  1. LORBRENA [Suspect]
     Active Substance: LORLATINIB
     Dates: start: 202210

REACTIONS (12)
  - Neuropathy peripheral [Unknown]
  - Weight increased [Unknown]
  - Swelling [Unknown]
  - Amnesia [Unknown]
  - Mood swings [Unknown]
  - Cognitive disorder [Unknown]
  - Arthralgia [Unknown]
  - Abdominal distension [Unknown]
  - Diarrhoea [Unknown]
  - Impatience [Unknown]
  - Blood cholesterol increased [Unknown]
  - Hypertension [Unknown]

NARRATIVE: CASE EVENT DATE: 20230101
